FAERS Safety Report 8726703 (Version 2)
Quarter: 2012Q4

REPORT INFORMATION
  Report Type: 
  Country: US (occurrence: US)
  Receive Date: 20120816
  Receipt Date: 20120926
  Transmission Date: 20130627
  Serious: Yes (Other)
  Sender: FDA-Public Use
  Company Number: US-ASTRAZENECA-2012SE55661

PATIENT
  Age: 60 Year
  Sex: Female
  Weight: 58.1 kg

DRUGS (11)
  1. NEXIUM [Suspect]
     Indication: GASTROOESOPHAGEAL REFLUX DISEASE
     Route: 048
     Dates: start: 2001
  2. CYMBALTA [Concomitant]
  3. WELLBUTRIN [Concomitant]
  4. LIPITOR [Concomitant]
  5. VITAMIN D [Concomitant]
  6. ALFALIPOIC ACID [Concomitant]
  7. VITAMIN B12 [Concomitant]
     Dosage: 3000 BCG
  8. ACETYL-L-CARNITINE [Concomitant]
  9. FISH OIL [Concomitant]
  10. MULTIVITAMINS [Concomitant]
  11. MINERALS [Concomitant]

REACTIONS (3)
  - Breast cancer [Unknown]
  - Barrett^s oesophagus [Unknown]
  - Abdominal discomfort [Unknown]
